FAERS Safety Report 7979096-6 (Version None)
Quarter: 2011Q4

REPORT INFORMATION
  Report Type: 
  Country: None (occurrence: None)
  Receive Date: 20111214
  Receipt Date: 20111208
  Transmission Date: 20120403
  Serious: No
  Sender: FDA-Public Use
  Company Number: US-PFIZER INC-2011300784

PATIENT
  Sex: Female
  Weight: 63.5 kg

DRUGS (2)
  1. VITAMIN D [Concomitant]
     Dosage: 1000 MG, DAILY
  2. LIPITOR [Suspect]
     Indication: BLOOD CHOLESTEROL INCREASED
     Dosage: 10 MG, DAILY
     Route: 048

REACTIONS (1)
  - BLOOD CHOLESTEROL INCREASED [None]
